FAERS Safety Report 17220822 (Version 3)
Quarter: 2020Q4

REPORT INFORMATION
  Report Type: Spontaneous
  Country: US (occurrence: US)
  Receive Date: 20191231
  Receipt Date: 20201015
  Transmission Date: 20210113
  Serious: Yes (Hospitalization, Other)
  Sender: FDA-Public Use
  Company Number: US-TAKEDA-2019TUS074262

PATIENT

DRUGS (38)
  1. DICLOFENAC [Concomitant]
     Active Substance: DICLOFENAC
  2. EFFIENT [Concomitant]
     Active Substance: PRASUGREL HYDROCHLORIDE
  3. VICODIN [Concomitant]
     Active Substance: ACETAMINOPHEN\HYDROCODONE BITARTRATE
  4. ATORVASTATIN [Concomitant]
     Active Substance: ATORVASTATIN
  5. FLUTICASONE. [Concomitant]
     Active Substance: FLUTICASONE
  6. HYDROCODONE [Concomitant]
     Active Substance: HYDROCODONE
  7. METOPROLOL. [Concomitant]
     Active Substance: METOPROLOL
     Indication: CARDIAC DISORDER
     Dosage: UNK
     Dates: start: 20120809
  8. ALLOPURINOL. [Concomitant]
     Active Substance: ALLOPURINOL
  9. AMOXICILLINE                       /00249602/ [Concomitant]
     Active Substance: AMOXICILLIN
  10. CYCLOBENZAPRINE. [Concomitant]
     Active Substance: CYCLOBENZAPRINE
  11. VENTOLINE                          /00139501/ [Concomitant]
     Active Substance: ALBUTEROL
  12. PREDNISONE. [Concomitant]
     Active Substance: PREDNISONE
     Indication: GOUT
     Dosage: UNK
     Dates: start: 20090507
  13. ACETAMINOPHEN. [Concomitant]
     Active Substance: ACETAMINOPHEN
  14. COLCHICINE. [Concomitant]
     Active Substance: COLCHICINE
  15. COLCRYS [Concomitant]
     Active Substance: COLCHICINE
  16. FLUVIRINE [Concomitant]
  17. VIAGRA [Concomitant]
     Active Substance: SILDENAFIL CITRATE
  18. VOLTAREN [Concomitant]
     Active Substance: DICLOFENAC SODIUM
  19. ASPIRIN                            /00002701/ [Concomitant]
     Active Substance: ASPIRIN
  20. BENZONATATE. [Concomitant]
     Active Substance: BENZONATATE
  21. DIAZEPAM. [Concomitant]
     Active Substance: DIAZEPAM
  22. LISINOPRIL. [Concomitant]
     Active Substance: LISINOPRIL
     Indication: CARDIAC DISORDER
     Dosage: UNK
     Dates: start: 20120809
  23. AMLODIPINE [Concomitant]
     Active Substance: AMLODIPINE BESYLATE
     Dosage: UNK
  24. CLINDAMYCIN. [Concomitant]
     Active Substance: CLINDAMYCIN
  25. EPIPEN [Concomitant]
     Active Substance: EPINEPHRINE
  26. JANUVIA [Concomitant]
     Active Substance: SITAGLIPTIN PHOSPHATE
  27. MONTELUKAST [Concomitant]
     Active Substance: MONTELUKAST SODIUM
  28. NAPROXEN. [Concomitant]
     Active Substance: NAPROXEN
  29. AMOXICILLIN CLAVULANIC ACID [Concomitant]
     Active Substance: AMOXICILLIN\CLAVULANIC ACID
     Dosage: UNK
  30. ULORIC [Suspect]
     Active Substance: FEBUXOSTAT
     Indication: GOUT
     Dosage: 80 MILLIGRAM
     Route: 048
     Dates: start: 20101102, end: 20120905
  31. FAMOTIDINE. [Concomitant]
     Active Substance: FAMOTIDINE
     Dosage: UNK
  32. DIPHENHYDRAMINE. [Concomitant]
     Active Substance: DIPHENHYDRAMINE
  33. EPINEPHRINE. [Concomitant]
     Active Substance: EPINEPHRINE
  34. INDOMETHACIN                       /00003801/ [Concomitant]
     Active Substance: INDOMETHACIN
  35. MAXAIR                             /00587603/ [Concomitant]
  36. PROVENTIL [Concomitant]
     Active Substance: ALBUTEROL
  37. METHYLPREDISOLONE [Concomitant]
     Active Substance: METHYLPREDNISOLONE
  38. RANITIDINE. [Concomitant]
     Active Substance: RANITIDINE

REACTIONS (5)
  - Hyperhidrosis [Unknown]
  - Cough [Unknown]
  - Chest discomfort [Unknown]
  - Coronary artery stenosis [Not Recovered/Not Resolved]
  - Headache [Unknown]

NARRATIVE: CASE EVENT DATE: 20120806
